FAERS Safety Report 6225448-4 (Version None)
Quarter: 2009Q2

REPORT INFORMATION
  Report Type: 
  Country: None (occurrence: None)
  Receive Date: 20090612
  Receipt Date: 20090421
  Transmission Date: 20091009
  Serious: No
  Sender: FDA-Public Use
  Company Number: US-ABBOTT-09P-163-0569211-00

PATIENT
  Sex: Female
  Weight: 116.68 kg

DRUGS (9)
  1. HUMIRA [Suspect]
     Indication: COLITIS ULCERATIVE
     Route: 058
     Dates: start: 20080701
  2. HUMIRA [Suspect]
     Indication: CROHN'S DISEASE
  3. COLAZAL [Concomitant]
     Indication: CROHN'S DISEASE
     Route: 048
  4. COLAZAL [Concomitant]
     Indication: COLITIS ULCERATIVE
  5. COUMADIN [Concomitant]
     Indication: DEEP VEIN THROMBOSIS
     Dosage: UNKNOWN
  6. COUMADIN [Concomitant]
     Indication: PULMONARY EMBOLISM
  7. LASIX [Concomitant]
     Indication: FLUID RETENTION
     Route: 048
  8. MERCAPTOPURINE [Concomitant]
     Indication: CROHN'S DISEASE
     Route: 048
  9. MERCAPTOPURINE [Concomitant]
     Indication: COLITIS ULCERATIVE

REACTIONS (1)
  - ABSCESS [None]
